FAERS Safety Report 18496771 (Version 2)
Quarter: 2021Q2

REPORT INFORMATION
  Report Type: Spontaneous
  Country: US (occurrence: US)
  Receive Date: 20201112
  Receipt Date: 20210406
  Transmission Date: 20210717
  Serious: Yes (Hospitalization)
  Sender: FDA-Public Use
  Company Number: US-PFIZER INC-2020443543

PATIENT
  Age: 55 Year
  Sex: Female

DRUGS (1)
  1. XELJANZ XR [Suspect]
     Active Substance: TOFACITINIB CITRATE
     Indication: RHEUMATOID ARTHRITIS
     Dosage: 11 MG, DAILY
     Route: 048
     Dates: start: 202009

REACTIONS (4)
  - Condition aggravated [Unknown]
  - COVID-19 [Recovered/Resolved]
  - Thrombosis [Unknown]
  - Joint swelling [Unknown]

NARRATIVE: CASE EVENT DATE: 2020
